FAERS Safety Report 4711738-0 (Version None)
Quarter: 2005Q3

REPORT INFORMATION
  Report Type: 
  Country: None (occurrence: None)
  Receive Date: 20050708
  Receipt Date: 20050708
  Transmission Date: 20060218
  Serious: Yes (Other)
  Sender: FDA-Public Use
  Company Number: None

PATIENT
  Sex: Male
  Weight: 96.4 kg

DRUGS (1)
  1. BCNU [Suspect]
     Indication: ANAPLASTIC ASTROCYTOMA
     Dosage: 8 0 MG/M2 IV DAYS 1, 2, 3 PT RECEIVED TOTAL OF 510 MG
     Route: 042
     Dates: start: 20041130

REACTIONS (1)
  - PAIN IN EXTREMITY [None]
